FAERS Safety Report 21811925 (Version 1)
Quarter: 2023Q1

REPORT INFORMATION
  Report Type: Report from Study
  Country: US (occurrence: US)
  Receive Date: 20230103
  Receipt Date: 20230103
  Transmission Date: 20230418
  Serious: No
  Sender: FDA-Public Use
  Company Number: US-ABBVIE-4217159

PATIENT
  Age: 43 Year
  Sex: Male

DRUGS (1)
  1. SKYRIZI [Suspect]
     Active Substance: RISANKIZUMAB-RZAA
     Indication: Psoriasis
     Route: 058

REACTIONS (3)
  - Nasopharyngitis [Recovering/Resolving]
  - Respiratory tract congestion [Unknown]
  - Sinus congestion [Unknown]

NARRATIVE: CASE EVENT DATE: 20221101
